FAERS Safety Report 13767934 (Version 1)
Quarter: 2017Q3

REPORT INFORMATION
  Report Type: Spontaneous
  Country: US (occurrence: US)
  Receive Date: 20170719
  Receipt Date: 20170719
  Transmission Date: 20171127
  Serious: Yes (Other)
  Sender: FDA-Public Use
  Company Number: US-PFIZER INC-2017311587

PATIENT
  Age: 80 Year
  Sex: Female
  Weight: 102.6 kg

DRUGS (10)
  1. FISH OIL [Suspect]
     Active Substance: FISH OIL
     Indication: SUPPLEMENTATION THERAPY
     Dosage: 1200MG ONE CAPSUEL BY MOUTH ONCE IN THE MORING AND ONCE AT NIGHT
     Route: 048
  2. ADVIL [Suspect]
     Active Substance: IBUPROFEN
     Indication: HEADACHE
  3. ADVIL [Suspect]
     Active Substance: IBUPROFEN
     Indication: PAIN
     Dosage: 200MG, 1-2 TABLETS BY MOUTH AS NEEDED
     Route: 048
     Dates: start: 2017
  4. VALSARTAN HCTZ [Suspect]
     Active Substance: HYDROCHLOROTHIAZIDE\VALSARTAN
     Indication: DIURETIC THERAPY
     Dosage: [VALSARTAN 320] / [HYDROCHLOROTHIAZIDE 25] 1 TABLET BY MOUTH ONCE AT NIGHT ONLY ONCE IN A WHILE LATE
     Route: 048
  5. DOCUSATE SODIUM. [Suspect]
     Active Substance: DOCUSATE SODIUM
     Indication: ABNORMAL FAECES
     Dosage: 100MG ONE SOFTGELS ONCE A DAY
  6. GLIMEPIRIDE. [Concomitant]
     Active Substance: GLIMEPIRIDE
     Indication: DIABETES MELLITUS
     Dosage: 4 MG, 2X/DAY ^BEGAN 6-8 MONTHS AGO^
     Route: 048
  7. ASPIRIN. [Concomitant]
     Active Substance: ASPIRIN
     Indication: ANTICOAGULANT THERAPY
     Dosage: 325MG ONE TABLET BY MOUTH ONCE A DAY AT NIGHT
     Route: 048
  8. L-THYROXINE [Concomitant]
     Active Substance: LEVOTHYROXINE
     Indication: HYPOTHYROIDISM
     Dosage: 50MCG ONE AND A HALF TABLETS BY MOUTH ONCE A DAY
     Route: 048
  9. TRADJENTA [Concomitant]
     Active Substance: LINAGLIPTIN
     Indication: DIABETES MELLITUS
     Dosage: 5 MG, 1X/DAY
     Route: 048
  10. Q-10 [Concomitant]
     Indication: SUPPLEMENTATION THERAPY
     Dosage: 100MG ONE PILL BY MOUTH TWICE A DAY
     Route: 048

REACTIONS (6)
  - Joint swelling [Not Recovered/Not Resolved]
  - Nausea [Unknown]
  - Intentional product misuse [Unknown]
  - Breast cancer [Unknown]
  - Peripheral swelling [Not Recovered/Not Resolved]
  - Gait disturbance [Unknown]

NARRATIVE: CASE EVENT DATE: 201706
